FAERS Safety Report 19136296 (Version 1)
Quarter: 2021Q2

REPORT INFORMATION
  Report Type: Spontaneous
  Country: US (occurrence: US)
  Receive Date: 20210414
  Receipt Date: 20210414
  Transmission Date: 20210717
  Serious: Yes (Other)
  Sender: FDA-Public Use
  Company Number: US-TAKEDA-2021TUS023360

PATIENT
  Age: 73 Year
  Sex: Male

DRUGS (1)
  1. DEXILANT [Suspect]
     Active Substance: DEXLANSOPRAZOLE
     Indication: GASTROOESOPHAGEAL REFLUX DISEASE
     Dosage: 60 MILLIGRAM, QD
     Route: 065
     Dates: start: 20210318, end: 20210405

REACTIONS (6)
  - Dysphagia [Recovered/Resolved]
  - Insomnia [Recovered/Resolved]
  - Choking [Recovered/Resolved]
  - Nausea [Recovered/Resolved]
  - Extra dose administered [Recovered/Resolved]
  - Drug ineffective [Recovered/Resolved]

NARRATIVE: CASE EVENT DATE: 20210318
